FAERS Safety Report 7638214-X (Version None)
Quarter: 2011Q3

REPORT INFORMATION
  Report Type: 
  Country: None (occurrence: None)
  Receive Date: 20110722
  Receipt Date: 20110722
  Transmission Date: 20111222
  Serious: Yes (Life-Threatening, Hospitalization)
  Sender: FDA-Public Use
  Company Number: None

PATIENT
  Age: 48 Year
  Sex: Female
  Weight: 77.5651 kg

DRUGS (1)
  1. SINGULAIR [Suspect]
     Dosage: 10MG DAILY ORAL
     Route: 048
     Dates: start: 20110210, end: 20110217

REACTIONS (4)
  - DRUG HYPERSENSITIVITY [None]
  - AGITATION [None]
  - INSOMNIA [None]
  - HEADACHE [None]
